FAERS Safety Report 4371556-2 (Version None)
Quarter: 2004Q2

REPORT INFORMATION
  Report Type: 
  Country: None (occurrence: None)
  Receive Date: 20040602
  Receipt Date: 20040521
  Transmission Date: 20050107
  Serious: Yes (Hospitalization)
  Sender: FDA-Public Use
  Company Number: 2004020149

PATIENT
  Age: 59 Year
  Sex: 0
  Weight: 86.1834 kg

DRUGS (2)
  1. NEURONTIN [Suspect]
     Indication: NEUROPATHIC PAIN
     Dosage: 2700 MG (BID), ORAL
     Route: 048
  2. ALL OTHER THERAPEUTIC PRODUCTS (ALL OTHER THERAPEUTIC PRODUCTS) [Suspect]

REACTIONS (4)
  - BLOOD DISORDER [None]
  - GOUT [None]
  - LABORATORY TEST ABNORMAL [None]
  - PAIN [None]
